FAERS Safety Report 6607977-4 (Version None)
Quarter: 2010Q1

REPORT INFORMATION
  Report Type: 
  Country: None (occurrence: None)
  Receive Date: 20100226
  Receipt Date: 20100226
  Transmission Date: 20100710
  Serious: No
  Sender: FDA-Public Use
  Company Number: None

PATIENT
  Age: 54 Year
  Sex: Male

DRUGS (1)
  1. ADALIMUMAB [Suspect]
     Dosage: 40 MG OTHER SQ
     Route: 058
     Dates: start: 20091118, end: 20100126

REACTIONS (3)
  - PRURITUS [None]
  - RASH [None]
  - URTICARIA [None]
